FAERS Safety Report 10029167 (Version 2)
Quarter: 2014Q2

REPORT INFORMATION
  Report Type: Spontaneous
  Country: US (occurrence: US)
  Receive Date: 20140321
  Receipt Date: 20140422
  Transmission Date: 20141212
  Serious: Yes (Hospitalization)
  Sender: FDA-Public Use
  Company Number: PHHY2014US032887

PATIENT
  Age: 56 Year
  Sex: Female
  Weight: 136 kg

DRUGS (13)
  1. LOPRESSOR [Suspect]
     Indication: HYPERTENSION
     Dosage: UNK UKN, UNK
     Route: 048
     Dates: start: 20110127
  2. VERAPAMIL HCL [Suspect]
     Indication: HYPERTENSION
     Dosage: UNK UKN, UNK
     Route: 048
     Dates: start: 20131203
  3. CAPTOPRIL [Suspect]
     Indication: HYPERTENSION
     Dosage: UNK UKN, UNK
     Route: 048
     Dates: start: 20130216
  4. AXITINIB [Suspect]
     Indication: MALIGNANT MELANOMA
     Dosage: 2 DF (5 MG), PER DAY
     Route: 048
     Dates: start: 20131120
  5. AXITINIB [Suspect]
     Dosage: UNK UKN, UNK
     Route: 048
     Dates: start: 20131219
  6. LASIX [Suspect]
     Indication: HYPERTENSION
     Dosage: UNK UKN, UNK
     Route: 048
     Dates: start: 20130216
  7. LYRICA [Concomitant]
     Indication: MYALGIA
     Dosage: UNK UKN, UNK
     Route: 048
     Dates: start: 20131203
  8. ALLOPURINOL [Concomitant]
     Indication: BLOOD URIC ACID INCREASED
     Dosage: UNK UKN, UNK
     Route: 048
     Dates: start: 20131104
  9. ASPIRIN [Concomitant]
     Indication: PAIN
     Dosage: UNK UKN, UNK
     Route: 048
     Dates: start: 20131104
  10. COLACE [Concomitant]
     Indication: CONSTIPATION
     Dosage: UNK UKN, UNK
     Route: 048
     Dates: start: 20131104
  11. GLIMEPIRIDE W/METFORMIN [Concomitant]
     Indication: DIABETES MELLITUS
     Dosage: UNK UKN, UNK
     Route: 048
     Dates: start: 20131104
  12. KLOR CON [Concomitant]
     Indication: HYPOKALAEMIA
     Dosage: UNK UKN, UNK
     Route: 048
     Dates: start: 20131104
  13. PRAVASTATIN SODIUM [Concomitant]
     Indication: OBESITY
     Dosage: UNK UKN, UNK
     Route: 048
     Dates: start: 20131104

REACTIONS (4)
  - Hyperkalaemia [Recovered/Resolved]
  - Sinus bradycardia [Recovering/Resolving]
  - Hypotension [Recovered/Resolved]
  - Haemoglobin decreased [Unknown]
